FAERS Safety Report 19379001 (Version 1)
Quarter: 2021Q2

REPORT INFORMATION
  Report Type: Spontaneous
  Country: US (occurrence: US)
  Receive Date: 20210606
  Receipt Date: 20210606
  Transmission Date: 20210717
  Serious: No
  Sender: FDA-Public Use
  Company Number: US-DRREDDYS-USA/USA/21/0136304

PATIENT
  Sex: Female

DRUGS (2)
  1. NICOTINE. [Suspect]
     Active Substance: NICOTINE
     Indication: TOBACCO USER
     Route: 062
     Dates: start: 20210523
  2. NICOTINE POLACRILEX LOZENGES [Concomitant]
     Indication: TOBACCO USER

REACTIONS (3)
  - Product adhesion issue [Unknown]
  - Underdose [Unknown]
  - Application site burn [Unknown]
